FAERS Safety Report 4399267-8 (Version None)
Quarter: 2004Q3

REPORT INFORMATION
  Report Type: 
  Country: None (occurrence: None)
  Receive Date: 20040712
  Receipt Date: 20040625
  Transmission Date: 20050211
  Serious: No
  Sender: FDA-Public Use
  Company Number: B0336751A

PATIENT
  Age: 30 Year
  Sex: Female

DRUGS (4)
  1. COMBIVIR [Suspect]
     Indication: HIV INFECTION
     Dosage: ORAL
     Route: 048
  2. NEVIRAPINE (FORMULATION UNKNOWN) [Suspect]
     Indication: HIV INFECTION
     Dosage: ORAL
     Route: 048
  3. CO-TRIMOXAZOLE [Concomitant]
  4. AZITHROMYCIN [Concomitant]

REACTIONS (1)
  - MYCOBACTERIUM AVIUM COMPLEX IMMUNE RESTORATION DISEASE [None]
